FAERS Safety Report 6603966-4 (Version None)
Quarter: 2010Q1

REPORT INFORMATION
  Report Type: 
  Country: None (occurrence: None)
  Receive Date: 20100226
  Receipt Date: 20090327
  Transmission Date: 20100710
  Serious: No
  Sender: FDA-Public Use
  Company Number: A0775911A

PATIENT
  Age: 32 Year
  Sex: Female

DRUGS (2)
  1. LAMOTRIGINE [Suspect]
     Route: 048
     Dates: start: 20080101
  2. ANTIBIOTIC UNSPECIFIED [Concomitant]
     Indication: ROSACEA

REACTIONS (3)
  - DEPRESSION [None]
  - FEELING ABNORMAL [None]
  - MENTAL STATUS CHANGES [None]
